FAERS Safety Report 24670262 (Version 1)
Quarter: 2024Q4

REPORT INFORMATION
  Report Type: Spontaneous
  Country: CA (occurrence: CA)
  Receive Date: 20241127
  Receipt Date: 20241127
  Transmission Date: 20250114
  Serious: Yes (Other)
  Sender: CSL BEHRING
  Company Number: CA-BEH-2024186122

PATIENT
  Age: 42 Year
  Sex: Female
  Weight: 126 kg

DRUGS (5)
  1. HUMAN C1-ESTERASE INHIBITOR [Suspect]
     Active Substance: HUMAN C1-ESTERASE INHIBITOR
     Indication: Hereditary angioedema
     Dosage: 3000 IU, BIW
     Route: 042
  2. HUMAN C1-ESTERASE INHIBITOR [Suspect]
     Active Substance: HUMAN C1-ESTERASE INHIBITOR
     Indication: Prophylaxis
     Dosage: UNK UNK, BIW
     Route: 065
  3. CYCLOSPORINE [Concomitant]
     Active Substance: CYCLOSPORINE
     Indication: Blood pressure abnormal
     Dosage: 0.5 DF
     Route: 065
  4. CLONAZEPAM [Concomitant]
     Active Substance: CLONAZEPAM
     Indication: Hereditary angioedema
     Dosage: UNK
     Route: 065
  5. PIPERAZINE CITRATE [Concomitant]
     Active Substance: PIPERAZINE CITRATE
     Indication: Hereditary angioedema
     Dosage: 40 ML
     Route: 065

REACTIONS (5)
  - Hereditary angioedema [Not Recovered/Not Resolved]
  - Malaise [Not Recovered/Not Resolved]
  - Poor venous access [Not Recovered/Not Resolved]
  - Off label use [Not Recovered/Not Resolved]
  - Product dose omission issue [Not Recovered/Not Resolved]
